FAERS Safety Report 4591480-X (Version None)
Quarter: 2005Q1

REPORT INFORMATION
  Report Type: 
  Country: None (occurrence: None)
  Receive Date: 20050222
  Receipt Date: 20050211
  Transmission Date: 20050727
  Serious: Yes (Death)
  Sender: FDA-Public Use
  Company Number: 163-20785-05020232

PATIENT
  Age: 56 Year
  Sex: Male

DRUGS (1)
  1. THALOMID [Suspect]
     Indication: NEOPLASM MALIGNANT
     Dosage: DAILY, ORAL
     Route: 048
     Dates: start: 20041210

REACTIONS (1)
  - CEREBRAL HAEMORRHAGE [None]
